FAERS Safety Report 5493444-0 (Version None)
Quarter: 2007Q4

REPORT INFORMATION
  Report Type: 
  Country: None (occurrence: None)
  Receive Date: 20071022
  Receipt Date: 20071022
  Transmission Date: 20080405
  Serious: No
  Sender: FDA-Public Use
  Company Number: None

PATIENT
  Age: 36 Year
  Sex: Female
  Weight: 52.1637 kg

DRUGS (1)
  1. VANCOMYCIN [Suspect]
     Indication: URINARY TRACT INFECTION ENTEROCOCCAL
     Dosage: 1 GRAM Q12HRS IV DRIP
     Route: 041
     Dates: start: 20071015, end: 20071015

REACTIONS (2)
  - FLUSHING [None]
  - RED MAN SYNDROME [None]
